FAERS Safety Report 24576005 (Version 1)
Quarter: 2024Q4

REPORT INFORMATION
  Report Type: Spontaneous
  Country: US (occurrence: US)
  Receive Date: 20241104
  Receipt Date: 20241104
  Transmission Date: 20250115
  Serious: Yes (Other)
  Sender: TEVA
  Company Number: US-TEVA-VS-3258794

PATIENT
  Age: 44 Year
  Sex: Female
  Weight: 74.84 kg

DRUGS (4)
  1. AJOVY [Suspect]
     Active Substance: FREMANEZUMAB-VFRM
     Indication: Migraine
     Dosage: FORM STRENGTH:  225/1.5 MG/ML
     Route: 065
     Dates: start: 202404
  2. ESTRADIOL [Concomitant]
     Active Substance: ESTRADIOL
     Indication: Product used for unknown indication
     Route: 065
  3. VALACYCLOVIR [Concomitant]
     Active Substance: VALACYCLOVIR HYDROCHLORIDE
     Indication: Product used for unknown indication
     Route: 065
  4. VITAMINS [Concomitant]
     Active Substance: VITAMINS
     Indication: Product used for unknown indication
     Route: 065

REACTIONS (9)
  - Polyp [Not Recovered/Not Resolved]
  - Injection site vesicles [Recovering/Resolving]
  - Injection site pain [Unknown]
  - Incorrect dose administered by device [Unknown]
  - Injection site mass [Not Recovered/Not Resolved]
  - Injection site urticaria [Recovered/Resolved]
  - Device defective [Unknown]
  - Injection site induration [Not Recovered/Not Resolved]
  - Injection site erythema [Recovered/Resolved]

NARRATIVE: CASE EVENT DATE: 20240101
